FAERS Safety Report 11054858 (Version 1)
Quarter: 2015Q2

REPORT INFORMATION
  Report Type: Spontaneous
  Country: US (occurrence: None)
  Receive Date: 20150421
  Receipt Date: 20150421
  Transmission Date: 20150821
  Serious: Yes (Other)
  Sender: FDA-Public Use
  Company Number: None

PATIENT
  Age: 55 Year
  Sex: Female
  Weight: 124.29 kg

DRUGS (16)
  1. CETIRIZINE HCL [Concomitant]
     Active Substance: CETIRIZINE HYDROCHLORIDE
  2. CYCLOBENZAPRINE [Concomitant]
     Active Substance: CYCLOBENZAPRINE
  3. TRAMADOL HYDROCHLORIDE AND ACETAMINOPHEN [Concomitant]
     Active Substance: ACETAMINOPHEN\TRAMADOL HYDROCHLORIDE
  4. MELOXICAM. [Concomitant]
     Active Substance: MELOXICAM
  5. IPRATROPIUM BROMIDE. [Concomitant]
     Active Substance: IPRATROPIUM BROMIDE
  6. MUCINEX [Concomitant]
     Active Substance: GUAIFENESIN
  7. DESLORATADINE. [Concomitant]
     Active Substance: DESLORATADINE
  8. METOPROL SUCC [Concomitant]
  9. POTASSIUM CHL [Concomitant]
  10. EDARBYCLOR [Suspect]
     Active Substance: AZILSARTAN KAMEDOXOMIL\CHLORTHALIDONE
     Indication: HYPERTENSION
     Route: 048
     Dates: start: 20120702, end: 20150301
  11. DIOVAN HCT [Concomitant]
     Active Substance: HYDROCHLOROTHIAZIDE\VALSARTAN
  12. PREDNISONE. [Concomitant]
     Active Substance: PREDNISONE
  13. SYMBICORT [Concomitant]
     Active Substance: BUDESONIDE\FORMOTEROL FUMARATE DIHYDRATE
  14. DIOVAN HCT [Concomitant]
     Active Substance: HYDROCHLOROTHIAZIDE\VALSARTAN
  15. COMBIVENT [Concomitant]
     Active Substance: ALBUTEROL SULFATE\IPRATROPIUM BROMIDE
  16. FLAXSEED [Concomitant]
     Active Substance: FLAX SEED

REACTIONS (13)
  - Muscle spasms [None]
  - Hypoaesthesia [None]
  - Headache [None]
  - Movement disorder [None]
  - Oedema peripheral [None]
  - Jaw disorder [None]
  - Paranasal sinus discomfort [None]
  - Peripheral swelling [None]
  - Joint dislocation [None]
  - Deafness [None]
  - Gingival bleeding [None]
  - Abdominal pain upper [None]
  - Tooth disorder [None]

NARRATIVE: CASE EVENT DATE: 201210
